FAERS Safety Report 9494554 (Version 1)
Quarter: 2013Q3

REPORT INFORMATION
  Report Type: Spontaneous
  Country: US (occurrence: None)
  Receive Date: 20130830
  Receipt Date: 20130830
  Transmission Date: 20140515
  Serious: Yes (Hospitalization, Other)
  Sender: FDA-Public Use
  Company Number: None

PATIENT
  Age: 66 Year
  Sex: Male
  Weight: 65.77 kg

DRUGS (8)
  1. PLAVIX [Suspect]
     Indication: CARDIAC DISORDER
     Dosage: 1 PER DAY  BY MOUTH?SPRING OF 2012 - JUNE 19 / 13
     Route: 048
     Dates: start: 2012, end: 20130619
  2. METAFORMIN [Concomitant]
  3. ATORVASTAIN [Concomitant]
  4. METROPROL [Concomitant]
  5. LISINOPRIL [Concomitant]
  6. CLONAZEPAM [Concomitant]
  7. FERROUS SULFATE [Concomitant]
  8. CENTRUM SILVER MULTIVITAMIN [Concomitant]

REACTIONS (5)
  - Dyspnoea [None]
  - Suffocation feeling [None]
  - Oxygen saturation decreased [None]
  - Haemorrhage [None]
  - Apparent death [None]
